FAERS Safety Report 21796148 (Version 2)
Quarter: 2022Q4

REPORT INFORMATION
  Report Type: Spontaneous
  Country: US (occurrence: US)
  Receive Date: 20221229
  Receipt Date: 20221230
  Transmission Date: 20230112
  Serious: Yes (Hospitalization)
  Sender: FDA-Public Use
  Company Number: US-BoehringerIngelheim-2022-BI-210192

PATIENT
  Age: 68 Year
  Sex: Male

DRUGS (4)
  1. COMBIVENT RESPIMAT [Suspect]
     Active Substance: ALBUTEROL SULFATE\IPRATROPIUM BROMIDE
     Indication: Chronic obstructive pulmonary disease
     Dosage: 2 TO 6 PUFFS PER DAY AS NEEDED
  2. COMBIVENT RESPIMAT [Suspect]
     Active Substance: ALBUTEROL SULFATE\IPRATROPIUM BROMIDE
     Indication: Emphysema
  3. COMBIVENT RESPIMAT [Suspect]
     Active Substance: ALBUTEROL SULFATE\IPRATROPIUM BROMIDE
     Indication: Pneumoconiosis
  4. ALBUTEROL [Concomitant]
     Active Substance: ALBUTEROL
     Indication: Product used for unknown indication

REACTIONS (4)
  - Blood cholesterol increased [Not Recovered/Not Resolved]
  - Chronic obstructive pulmonary disease [Recovering/Resolving]
  - Intentional product use issue [Unknown]
  - Device malfunction [Unknown]

NARRATIVE: CASE EVENT DATE: 20221225
